FAERS Safety Report 21596214 (Version 2)
Quarter: 2022Q4

REPORT INFORMATION
  Report Type: Report from Study
  Country: US (occurrence: US)
  Receive Date: 20221115
  Receipt Date: 20221122
  Transmission Date: 20230112
  Serious: No
  Sender: FDA-Public Use
  Company Number: US-002147023-NVSC2022US255606

PATIENT
  Sex: Female

DRUGS (1)
  1. KESIMPTA [Suspect]
     Active Substance: OFATUMUMAB
     Indication: Multiple sclerosis
     Route: 058
     Dates: start: 20221109

REACTIONS (6)
  - Contusion [Unknown]
  - Gait disturbance [Unknown]
  - Nausea [Unknown]
  - Pruritus [Unknown]
  - Fatigue [Unknown]
  - Headache [Unknown]
